FAERS Safety Report 6688295-5 (Version None)
Quarter: 2010Q2

REPORT INFORMATION
  Report Type: 
  Country: None (occurrence: None)
  Receive Date: 20100420
  Receipt Date: 20100415
  Transmission Date: 20101027
  Serious: Yes (Death, Hospitalization)
  Sender: FDA-Public Use
  Company Number: NL-ROCHE-693386

PATIENT
  Age: 63 Year
  Sex: Male

DRUGS (6)
  1. XELODA [Suspect]
     Dosage: ROUTE AND FORM NOT PROVIDED.
     Route: 065
     Dates: start: 20091223
  2. OXALIPLATIN [Suspect]
     Route: 065
     Dates: start: 20091223
  3. SOMATOSTATIN [Suspect]
     Route: 065
  4. CARDURA [Concomitant]
  5. AMLODIPINE [Concomitant]
  6. ATENOL [Concomitant]

REACTIONS (7)
  - BACTERIAL SEPSIS [None]
  - DEHYDRATION [None]
  - DIARRHOEA [None]
  - FEBRILE NEUTROPENIA [None]
  - MUCOSAL INFLAMMATION [None]
  - RENAL IMPAIRMENT [None]
  - SYNCOPE [None]
